FAERS Safety Report 10426317 (Version 1)
Quarter: 2014Q3

REPORT INFORMATION
  Report Type: Spontaneous
  Country: US (occurrence: None)
  Receive Date: 20140902
  Receipt Date: 20140902
  Transmission Date: 20150326
  Serious: Yes (Death)
  Sender: FDA-Public Use
  Company Number: None

PATIENT
  Age: 30 Year
  Sex: Female
  Weight: 101 kg

DRUGS (1)
  1. RIVAROXABAN 20 MG JANSSEN [Suspect]
     Active Substance: RIVAROXABAN
     Indication: PULMONARY EMBOLISM
     Dosage: 1 TABLET, QD, ORAL
     Route: 048

REACTIONS (7)
  - Respiratory distress [None]
  - Chest discomfort [None]
  - Cardio-respiratory arrest [None]
  - Haemoptysis [None]
  - Pulmonary alveolar haemorrhage [None]
  - Cough [None]
  - Dyspnoea [None]

NARRATIVE: CASE EVENT DATE: 20140831
